FAERS Safety Report 4667711-4 (Version None)
Quarter: 2005Q2

REPORT INFORMATION
  Report Type: 
  Country: None (occurrence: None)
  Receive Date: 20050520
  Receipt Date: 20050520
  Transmission Date: 20051028
  Serious: No
  Sender: FDA-Public Use
  Company Number: None

PATIENT
  Sex: Female

DRUGS (1)
  1. COUMADIN [Suspect]
     Dosage: DAILY PO
     Route: 048
     Dates: start: 20050101

REACTIONS (2)
  - NAUSEA [None]
  - VERTIGO [None]
